FAERS Safety Report 9362702 (Version 1)
Quarter: 2013Q2

REPORT INFORMATION
  Report Type: Spontaneous
  Country: US (occurrence: US)
  Receive Date: 20130622
  Receipt Date: 20130622
  Transmission Date: 20140414
  Serious: No
  Sender: FDA-Public Use
  Company Number: US-US-EMD SERONO, INC.-7140275

PATIENT
  Age: 31 Year
  Sex: Female
  Weight: 87 kg

DRUGS (3)
  1. REBIF [Suspect]
     Indication: MULTIPLE SCLEROSIS
     Route: 058
  2. REBIF [Suspect]
     Route: 058
     Dates: start: 20120530
  3. REBIF [Suspect]
     Route: 058
     Dates: start: 20120613

REACTIONS (2)
  - Insomnia [Not Recovered/Not Resolved]
  - Influenza like illness [Unknown]
